FAERS Safety Report 6284503-3 (Version None)
Quarter: 2009Q3

REPORT INFORMATION
  Report Type: 
  Country: None (occurrence: None)
  Receive Date: 20090727
  Receipt Date: 20090721
  Transmission Date: 20100115
  Serious: Yes (Other)
  Sender: FDA-Public Use
  Company Number: BR-BAYER-200915039LA

PATIENT
  Sex: Female

DRUGS (1)
  1. MIRENA [Suspect]
     Indication: DRUG USE FOR UNKNOWN INDICATION
     Dosage: FREQUENCY: CONTINUOUS
     Route: 064

REACTIONS (3)
  - CONGENITAL AORTIC ANOMALY [None]
  - CONGENITAL CARDIOVASCULAR ANOMALY [None]
  - VENTRICULAR SEPTAL DEFECT [None]
